FAERS Safety Report 18131752 (Version 4)
Quarter: 2020Q3

REPORT INFORMATION
  Report Type: Report from Study
  Country: US (occurrence: US)
  Receive Date: 20200810
  Receipt Date: 20200918
  Transmission Date: 20201103
  Serious: Yes (Death, Life-Threatening)
  Sender: FDA-Public Use
  Company Number: US-BEIGENE-BGN-2020-001390

PATIENT

DRUGS (9)
  1. PLASBUMIN?25 LOW ALBUMIN [Concomitant]
     Dosage: 250 MILLILITER, QWK
     Route: 042
     Dates: start: 20200729, end: 20200729
  2. ZANUBRUTINIB [Suspect]
     Active Substance: ZANUBRUTINIB
     Indication: COVID-19
     Dosage: 320 MILLIGRAM, QD
     Dates: start: 20200722, end: 20200805
  3. LOVENOX [Concomitant]
     Active Substance: ENOXAPARIN SODIUM
     Dosage: 80 MILLIGRAM, Q12H
     Route: 058
     Dates: start: 20200710, end: 20200804
  4. PROPOFOL. [Concomitant]
     Active Substance: PROPOFOL
     Indication: SEDATION
     Dosage: UNK
     Dates: start: 20200726, end: 20200805
  5. LOVENOX [Concomitant]
     Active Substance: ENOXAPARIN SODIUM
     Indication: THROMBOSIS PROPHYLAXIS
     Dosage: 40 MILLIGRAM, QD
     Route: 058
     Dates: start: 20200706, end: 20200709
  6. LASIX [Concomitant]
     Active Substance: FUROSEMIDE
     Dosage: 40 MILLIGRAM, BID
     Route: 042
     Dates: start: 20200723, end: 20200802
  7. LASIX [Concomitant]
     Active Substance: FUROSEMIDE
     Dosage: 20 MILLIGRAM, QD
     Route: 042
     Dates: start: 20200803, end: 20200803
  8. PLASBUMIN?25 LOW ALBUMIN [Concomitant]
     Indication: COVID-19
     Dosage: 100 MILLILITER, QD
     Route: 042
     Dates: start: 20200722, end: 20200722
  9. LASIX [Concomitant]
     Active Substance: FUROSEMIDE
     Indication: FLUID OVERLOAD
     Dosage: 20 UNK, PRN
     Route: 042
     Dates: start: 20200718

REACTIONS (2)
  - Haemorrhage intracranial [Fatal]
  - Hypernatraemia [Recovered/Resolved with Sequelae]

NARRATIVE: CASE EVENT DATE: 20200804
